FAERS Safety Report 6694862-5 (Version None)
Quarter: 2010Q2

REPORT INFORMATION
  Report Type: 
  Country: None (occurrence: None)
  Receive Date: 20100420
  Receipt Date: 20100409
  Transmission Date: 20101027
  Serious: Yes (Hospitalization)
  Sender: FDA-Public Use
  Company Number: 230175K09CAN

PATIENT
  Age: 50 Year
  Sex: Male

DRUGS (7)
  1. REBIF [Suspect]
     Indication: RELAPSING-REMITTING MULTIPLE SCLEROSIS
     Dosage: 44 MCG, 3 IN 1 WK;
     Dates: start: 20071003
  2. ESCITALOPRAM OXALATE [Concomitant]
  3. CALCIUM AND VITAMIN D (CALCIUM WITH VITAMIN D) [Concomitant]
  4. IMMOVANE (ZIPICLONE) [Concomitant]
  5. CITALOPRAM HYDROBROMIDE [Concomitant]
  6. QUETIAPINE (QUETIAPINE) [Concomitant]
  7. LOVAZA [Concomitant]

REACTIONS (16)
  - AMNESIA [None]
  - BALANCE DISORDER [None]
  - CONDITION AGGRAVATED [None]
  - CONTUSION [None]
  - DIZZINESS [None]
  - FATIGUE [None]
  - HYPOAESTHESIA [None]
  - INFLUENZA LIKE ILLNESS [None]
  - MULTIPLE SCLEROSIS [None]
  - MUSCLE SPASTICITY [None]
  - MUSCLE TWITCHING [None]
  - MUSCULOSKELETAL STIFFNESS [None]
  - OPTIC NEURITIS [None]
  - PNEUMONIA [None]
  - VISUAL IMPAIRMENT [None]
  - WRONG TECHNIQUE IN DRUG USAGE PROCESS [None]
